FAERS Safety Report 7957800-0 (Version None)
Quarter: 2011Q4

REPORT INFORMATION
  Report Type: 
  Country: None (occurrence: None)
  Receive Date: 20111130
  Receipt Date: 20111116
  Transmission Date: 20120403
  Serious: Yes (Death, Other)
  Sender: FDA-Public Use
  Company Number: EU-2011-10257

PATIENT
  Age: 48 Year
  Sex: Female

DRUGS (15)
  1. DEXAMETHASONE [Concomitant]
  2. G-CSF (G-CSF) [Concomitant]
  3. CHEMOTHERAPY [Concomitant]
  4. SAMSCA [Suspect]
     Indication: INAPPROPRIATE ANTIDIURETIC HORMONE SECRETION
     Dosage: 15 MG MILLIGRAM(S), QD, ORAL, ORAL, TIW, ORAL, DAILY DOSE, ORAL
     Route: 048
     Dates: start: 20101001, end: 20101101
  5. SAMSCA [Suspect]
     Indication: HYPONATRAEMIA
     Dosage: 15 MG MILLIGRAM(S), QD, ORAL, ORAL, TIW, ORAL, DAILY DOSE, ORAL
     Route: 048
     Dates: start: 20101001, end: 20101101
  6. SAMSCA [Suspect]
     Indication: INAPPROPRIATE ANTIDIURETIC HORMONE SECRETION
     Dosage: 15 MG MILLIGRAM(S), QD, ORAL, ORAL, TIW, ORAL, DAILY DOSE, ORAL
     Route: 048
     Dates: start: 20101229
  7. SAMSCA [Suspect]
     Indication: HYPONATRAEMIA
     Dosage: 15 MG MILLIGRAM(S), QD, ORAL, ORAL, TIW, ORAL, DAILY DOSE, ORAL
     Route: 048
     Dates: start: 20101229
  8. SAMSCA [Suspect]
     Indication: INAPPROPRIATE ANTIDIURETIC HORMONE SECRETION
     Dosage: 15 MG MILLIGRAM(S), QD, ORAL, ORAL, TIW, ORAL, DAILY DOSE, ORAL
     Route: 048
     Dates: start: 20101105, end: 20100101
  9. SAMSCA [Suspect]
     Indication: HYPONATRAEMIA
     Dosage: 15 MG MILLIGRAM(S), QD, ORAL, ORAL, TIW, ORAL, DAILY DOSE, ORAL
     Route: 048
     Dates: start: 20101105, end: 20100101
  10. SAMSCA [Suspect]
     Indication: INAPPROPRIATE ANTIDIURETIC HORMONE SECRETION
     Dosage: 15 MG MILLIGRAM(S), QD, ORAL, ORAL, TIW, ORAL, DAILY DOSE, ORAL
     Route: 048
     Dates: start: 20101001, end: 20111002
  11. SAMSCA [Suspect]
     Indication: HYPONATRAEMIA
     Dosage: 15 MG MILLIGRAM(S), QD, ORAL, ORAL, TIW, ORAL, DAILY DOSE, ORAL
     Route: 048
     Dates: start: 20101001, end: 20111002
  12. SAMSCA [Suspect]
     Indication: INAPPROPRIATE ANTIDIURETIC HORMONE SECRETION
     Dosage: 15 MG MILLIGRAM(S), QD, ORAL, ORAL, TIW, ORAL, DAILY DOSE, ORAL
     Route: 048
     Dates: start: 20101004, end: 20100101
  13. SAMSCA [Suspect]
     Indication: HYPONATRAEMIA
     Dosage: 15 MG MILLIGRAM(S), QD, ORAL, ORAL, TIW, ORAL, DAILY DOSE, ORAL
     Route: 048
     Dates: start: 20101004, end: 20100101
  14. DEMECLOCYCLINE (DEMECLOCYCLINE) TABLET [Concomitant]
  15. SODIUM CHLORIDE (SODIUM CHLORIDE) TABLET [Concomitant]

REACTIONS (5)
  - RAPID CORRECTION OF HYPONATRAEMIA [None]
  - INCORRECT DRUG ADMINISTRATION RATE [None]
  - SEPSIS [None]
  - INAPPROPRIATE ANTIDIURETIC HORMONE SECRETION [None]
  - GENERAL PHYSICAL HEALTH DETERIORATION [None]
